FAERS Safety Report 24006266 (Version 1)
Quarter: 2024Q2

REPORT INFORMATION
  Report Type: Spontaneous
  Country: US (occurrence: None)
  Receive Date: 20240621
  Receipt Date: 20240621
  Transmission Date: 20240716
  Serious: No
  Sender: FDA-Public Use
  Company Number: None

PATIENT
  Sex: Female

DRUGS (1)
  1. AMBRISENTAN [Suspect]
     Active Substance: AMBRISENTAN

REACTIONS (6)
  - Malaise [None]
  - Nausea [None]
  - Toothache [None]
  - Menstrual disorder [None]
  - Therapy interrupted [None]
  - Product use issue [None]
